FAERS Safety Report 5474934-3 (Version None)
Quarter: 2007Q4

REPORT INFORMATION
  Report Type: 
  Country: None (occurrence: None)
  Receive Date: 20071002
  Receipt Date: 20070927
  Transmission Date: 20080405
  Serious: Yes (Other)
  Sender: FDA-Public Use
  Company Number: US-SHR-US-2007-036635

PATIENT
  Age: 18 Year
  Sex: Female
  Weight: 70.295 kg

DRUGS (2)
  1. YAZ [Suspect]
     Indication: ACNE
     Dosage: 1 TAB(S), 1X/DAY
     Route: 048
     Dates: start: 20070921
  2. VITAMINS [Concomitant]

REACTIONS (3)
  - DIZZINESS [None]
  - FALL [None]
  - SYNCOPE [None]
